FAERS Safety Report 22229022 (Version 1)
Quarter: 2023Q2

REPORT INFORMATION
  Report Type: Spontaneous
  Country: None (occurrence: US)
  Receive Date: 20230419
  Receipt Date: 20230419
  Transmission Date: 20230721
  Serious: No
  Sender: FDA-Public Use
  Company Number: US-Lyne Laboratories Inc.-2140559

PATIENT
  Age: 81 Year
  Sex: Female
  Weight: 59.091 kg

DRUGS (1)
  1. FLUOCINOLONE ACETONIDE [Suspect]
     Active Substance: FLUOCINOLONE ACETONIDE
     Indication: Skin disorder
     Route: 061

REACTIONS (2)
  - Headache [Unknown]
  - Skin burning sensation [None]
